APPROVED DRUG PRODUCT: CALDOLOR
Active Ingredient: IBUPROFEN
Strength: 400MG/4ML (100MG/ML)
Dosage Form/Route: SOLUTION;INTRAVENOUS
Application: N022348 | Product #001
Applicant: CUMBERLAND PHARMACEUTICALS INC
Approved: Jun 11, 2009 | RLD: No | RS: No | Type: DISCN

EXCLUSIVITY:
Code: NPP | Date: May 11, 2026